FAERS Safety Report 7786832-0 (Version None)
Quarter: 2011Q3

REPORT INFORMATION
  Report Type: 
  Country: None (occurrence: None)
  Receive Date: 20110929
  Receipt Date: 20110926
  Transmission Date: 20111222
  Serious: Yes (Other)
  Sender: FDA-Public Use
  Company Number: CN-PFIZER INC-2011219224

PATIENT
  Age: 85 Year
  Sex: Female

DRUGS (1)
  1. ZYVOX [Suspect]
     Route: 041

REACTIONS (1)
  - EPILEPSY [None]
